FAERS Safety Report 15448877 (Version 3)
Quarter: 2019Q1

REPORT INFORMATION
  Report Type: Report from Study
  Country: US (occurrence: US)
  Receive Date: 20180930
  Receipt Date: 20190122
  Transmission Date: 20190417
  Serious: Yes (Other)
  Sender: FDA-Public Use
  Company Number: PHEH2018US040002

PATIENT
  Age: 28 Year
  Sex: Male

DRUGS (1)
  1. COSENTYX [Suspect]
     Active Substance: SECUKINUMAB
     Indication: ANKYLOSING SPONDYLITIS
     Dosage: 150 MG, QMO
     Route: 058
     Dates: start: 201805

REACTIONS (8)
  - Osteoarthritis [Unknown]
  - Ankylosing spondylitis [Unknown]
  - Nasopharyngitis [Unknown]
  - Insomnia [Recovered/Resolved]
  - Joint stiffness [Unknown]
  - Pharyngitis [Recovered/Resolved]
  - Drug ineffective [Unknown]
  - Pain [Recovered/Resolved]

NARRATIVE: CASE EVENT DATE: 201807
